FAERS Safety Report 13345771 (Version 3)
Quarter: 2017Q4

REPORT INFORMATION
  Report Type: Report from Study
  Country: JP (occurrence: JP)
  Receive Date: 20170317
  Receipt Date: 20171003
  Transmission Date: 20180320
  Serious: Yes (Hospitalization)
  Sender: FDA-Public Use
  Company Number: JP-JNJFOC-20170314138

PATIENT
  Age: 43 Year
  Sex: Female
  Weight: 48 kg

DRUGS (27)
  1. REMICADE [Suspect]
     Active Substance: INFLIXIMAB
     Indication: BEHCET^S SYNDROME
     Route: 042
     Dates: start: 20160616
  2. REMICADE [Suspect]
     Active Substance: INFLIXIMAB
     Indication: BEHCET^S SYNDROME
     Route: 042
     Dates: start: 20160728
  3. REMICADE [Suspect]
     Active Substance: INFLIXIMAB
     Indication: BEHCET^S SYNDROME
     Route: 042
     Dates: start: 20160302
  4. REMICADE [Suspect]
     Active Substance: INFLIXIMAB
     Indication: BEHCET^S SYNDROME
     Route: 042
     Dates: start: 20170123
  5. HEPARINOID [Suspect]
     Active Substance: CHONDROITIN SULFATE (BOVINE)
     Indication: RASH
     Route: 061
     Dates: start: 20161102, end: 20161104
  6. COBALT [Suspect]
     Active Substance: COBALT
     Indication: PRODUCT USED FOR UNKNOWN INDICATION
     Route: 065
  7. LENDORMIN [Concomitant]
     Active Substance: BROTIZOLAM
     Indication: DEPRESSION
     Route: 048
     Dates: start: 20160421
  8. WARFARIN [Concomitant]
     Active Substance: WARFARIN
     Indication: BEHCET^S SYNDROME
     Route: 048
  9. BAKTAR [Concomitant]
     Active Substance: SULFAMETHOXAZOLE\TRIMETHOPRIM
     Indication: PROPHYLAXIS
     Route: 048
  10. HEPARINOID [Suspect]
     Active Substance: CHONDROITIN SULFATE (BOVINE)
     Indication: ERYTHEMA
     Route: 061
     Dates: start: 20161102, end: 20161104
  11. REMICADE [Suspect]
     Active Substance: INFLIXIMAB
     Indication: BEHCET^S SYNDROME
     Route: 042
     Dates: start: 20160421
  12. REMICADE [Suspect]
     Active Substance: INFLIXIMAB
     Indication: BEHCET^S SYNDROME
     Route: 042
     Dates: start: 20160317
  13. WARFARIN K [Concomitant]
     Active Substance: WARFARIN POTASSIUM
     Indication: BEHCET^S SYNDROME
     Route: 048
  14. BROTIZOLAM [Concomitant]
     Active Substance: BROTIZOLAM
     Indication: DEPRESSION
     Route: 048
     Dates: start: 20160420
  15. HEPARINOID [Suspect]
     Active Substance: CHONDROITIN SULFATE (BOVINE)
     Indication: PRODUCT USED FOR UNKNOWN INDICATION
     Route: 051
     Dates: start: 20161031, end: 20161104
  16. ETIZOLAM [Concomitant]
     Active Substance: ETIZOLAM
     Indication: DEPRESSION
     Route: 048
     Dates: end: 20160420
  17. NICKEL [Suspect]
     Active Substance: NICKEL
     Indication: PRODUCT USED FOR UNKNOWN INDICATION
     Route: 065
  18. DEPAS [Concomitant]
     Active Substance: ETIZOLAM
     Indication: DEPRESSION
     Route: 048
     Dates: start: 20160421
  19. FERROMIA [Concomitant]
     Active Substance: SODIUM FERROUS CITRATE
     Indication: IRON DEFICIENCY ANAEMIA
     Route: 048
     Dates: start: 20161006, end: 20161226
  20. DESYREL [Concomitant]
     Active Substance: TRAZODONE HYDROCHLORIDE
     Indication: DEPRESSION
     Route: 048
  21. REMICADE [Suspect]
     Active Substance: INFLIXIMAB
     Indication: BEHCET^S SYNDROME
     Route: 042
     Dates: start: 20161202
  22. PALLADIUM [Suspect]
     Active Substance: PALLADIUM
     Indication: PRODUCT USED FOR UNKNOWN INDICATION
     Route: 065
  23. NEXIUM [Concomitant]
     Active Substance: ESOMEPRAZOLE MAGNESIUM
     Indication: PROPHYLAXIS
     Route: 048
  24. COLCHICINE. [Concomitant]
     Active Substance: COLCHICINE
     Indication: BEHCET^S SYNDROME
     Route: 048
  25. PAXIL [Concomitant]
     Active Substance: PAROXETINE HYDROCHLORIDE
     Indication: DEPRESSION
     Route: 048
  26. REMICADE [Suspect]
     Active Substance: INFLIXIMAB
     Indication: BEHCET^S SYNDROME
     Route: 042
     Dates: start: 20160908
  27. PREDONINE [Concomitant]
     Active Substance: PREDNISOLONE
     Indication: BEHCET^S SYNDROME
     Route: 048

REACTIONS (5)
  - Cough [Recovering/Resolving]
  - Rash [Recovering/Resolving]
  - Prurigo [Recovering/Resolving]
  - Erythema [Recovering/Resolving]
  - Eyelid oedema [Unknown]

NARRATIVE: CASE EVENT DATE: 201604
